FAERS Safety Report 7149471 (Version 12)
Quarter: 2013Q4

REPORT INFORMATION
  Report Type: Spontaneous
  Country: US (occurrence: US)
  Receive Date: 20090930
  Receipt Date: 20131023
  Transmission Date: 20140711
  Serious: Yes (Hospitalization)
  Sender: FDA-Public Use
  Company Number: US-009507513-2009SP017305

PATIENT
  Sex: Female
  Weight: 84.82 kg

DRUGS (1)
  1. NUVARING [Suspect]
     Indication: CONTRACEPTION
     Dosage: 1 DF, UNK
     Dates: start: 200604, end: 200611

REACTIONS (16)
  - Subarachnoid haemorrhage [Recovered/Resolved]
  - Cerebral venous thrombosis [Recovered/Resolved]
  - Chest pain [Unknown]
  - Hypertension [Unknown]
  - Pelvic pain [Unknown]
  - Dysfunctional uterine bleeding [Unknown]
  - Cerebral thrombosis [Recovered/Resolved]
  - Hypercoagulation [Recovered/Resolved]
  - Nausea [Unknown]
  - Headache [Unknown]
  - Speech disorder [Unknown]
  - Dyspnoea [Unknown]
  - Dyspepsia [Unknown]
  - Joint swelling [Unknown]
  - Hypercoagulation [Unknown]
  - Insomnia [Unknown]
